FAERS Safety Report 13735910 (Version 1)
Quarter: 2017Q3

REPORT INFORMATION
  Report Type: Spontaneous
  Country: SE (occurrence: SE)
  Receive Date: 20170710
  Receipt Date: 20170710
  Transmission Date: 20171127
  Serious: Yes (Other)
  Sender: FDA-Public Use
  Company Number: SE-009507513-1707SWE000503

PATIENT
  Age: 49 Year
  Sex: Female

DRUGS (5)
  1. JANUVIA [Suspect]
     Active Substance: SITAGLIPTIN PHOSPHATE
     Indication: TYPE 2 DIABETES MELLITUS
     Route: 048
  2. PENICILLIN (UNSPECIFIED) [Suspect]
     Active Substance: PENICILLIN
  3. CANDESARTAN. [Concomitant]
     Active Substance: CANDESARTAN
  4. METOPROLOL. [Concomitant]
     Active Substance: METOPROLOL
     Indication: HYPERTENSION
  5. METFORMIN [Concomitant]
     Active Substance: METFORMIN HYDROCHLORIDE
     Indication: TYPE 2 DIABETES MELLITUS

REACTIONS (8)
  - Oral discomfort [Unknown]
  - Disease progression [Unknown]
  - Bronchospasm [Unknown]
  - Cardiac failure [Unknown]
  - Dysphagia [Unknown]
  - Cardiac valve disease [Unknown]
  - General symptom [Unknown]
  - Tooth infection [Unknown]
